FAERS Safety Report 22173411 (Version 3)
Quarter: 2023Q2

REPORT INFORMATION
  Report Type: Spontaneous
  Country: US (occurrence: US)
  Receive Date: 20230404
  Receipt Date: 20230614
  Transmission Date: 20230721
  Serious: No
  Sender: FDA-Public Use
  Company Number: US-KARYOPHARM-2023KPT000899

PATIENT

DRUGS (18)
  1. XPOVIO [Suspect]
     Active Substance: SELINEXOR
     Indication: Plasma cell myeloma
     Dosage: 80 MG, WEEKLY
     Route: 048
     Dates: start: 20230201, end: 20230525
  2. ACYCLOVIR SODIUM [Concomitant]
     Active Substance: ACYCLOVIR SODIUM
  3. ASPIRIN [Concomitant]
     Active Substance: ASPIRIN
  4. CARVEDILOL [Concomitant]
     Active Substance: CARVEDILOL
  5. DEXAMETHASONE [Concomitant]
     Active Substance: DEXAMETHASONE
  6. FLOMAX [Concomitant]
     Active Substance: TAMSULOSIN HYDROCHLORIDE
  7. GABAPENTIN [Concomitant]
     Active Substance: GABAPENTIN
  8. HYDROMORPHONE HCL [Concomitant]
     Active Substance: HYDROMORPHONE HYDROCHLORIDE
  9. KYPROLIS [Concomitant]
     Active Substance: CARFILZOMIB
  10. OLANZAPINE [Concomitant]
     Active Substance: OLANZAPINE
  11. OXYCODONE [Concomitant]
     Active Substance: OXYCODONE
  12. SIMVASTATIN [Concomitant]
     Active Substance: SIMVASTATIN
  13. SODIUM CHLORIDE [Concomitant]
     Active Substance: SODIUM CHLORIDE
  14. TRAZODONE [Concomitant]
     Active Substance: TRAZODONE HYDROCHLORIDE
  15. VENLAFAXINE [Concomitant]
     Active Substance: VENLAFAXINE HYDROCHLORIDE
  16. ZOFRAN [Concomitant]
     Active Substance: ONDANSETRON HYDROCHLORIDE
  17. PROMETHAZINE [Concomitant]
     Active Substance: PROMETHAZINE HYDROCHLORIDE
  18. LISINOPRIL [Concomitant]
     Active Substance: LISINOPRIL

REACTIONS (4)
  - Plasma cell myeloma [Unknown]
  - Nausea [Not Recovered/Not Resolved]
  - Constipation [Unknown]
  - Vomiting [Unknown]

NARRATIVE: CASE EVENT DATE: 20230101
